FAERS Safety Report 6893698-X (Version None)
Quarter: 2010Q3

REPORT INFORMATION
  Report Type: 
  Country: None (occurrence: None)
  Receive Date: 20100731
  Receipt Date: 20100212
  Transmission Date: 20110219
  Serious: No
  Sender: FDA-Public Use
  Company Number: US-PFIZER INC-2008074238

PATIENT
  Sex: Female
  Weight: 88.4 kg

DRUGS (13)
  1. LIPITOR [Suspect]
     Indication: BLOOD CHOLESTEROL INCREASED
     Dosage: 80 MG, UNK
     Route: 048
  2. CRESTOR [Suspect]
  3. GLUCOTROL XL [Concomitant]
     Indication: DIABETES MELLITUS
     Dosage: 10 MG, 2X/DAY
     Route: 048
  4. ACCUPRIL [Concomitant]
     Indication: HYPERTENSION
     Dosage: 40 MG, 1X/DAY
     Route: 048
  5. LEXAPRO [Concomitant]
     Indication: DEPRESSION
     Dosage: 20 MG, 1X/DAY
     Route: 048
  6. THYROID TAB [Concomitant]
     Indication: HYPERTHYROIDISM
     Dosage: 90 MG, 1X/DAY
     Route: 048
  7. ACETYLSALICYLIC ACID [Concomitant]
     Indication: HYPERTENSION
     Dosage: 325 MG, UNK
     Route: 048
  8. PLAVIX [Concomitant]
     Indication: BLOOD CHOLESTEROL INCREASED
     Dosage: 75 MG, UNK
     Route: 048
  9. ZETIA [Concomitant]
     Indication: BLOOD CHOLESTEROL INCREASED
     Dosage: 10 MG, 1X/DAY
     Route: 048
  10. LOPID [Concomitant]
     Dosage: 600 MG, 1X/DAY
     Route: 048
     Dates: end: 20090101
  11. ALBUTEROL [Concomitant]
     Indication: HYPERSENSITIVITY
     Dosage: UNK
  12. PSEUDOEPHEDRINE [Concomitant]
     Indication: HYPERSENSITIVITY
     Dosage: UNK
  13. DIPHENHYDRAMINE [Concomitant]
     Indication: HYPERSENSITIVITY
     Dosage: UNK

REACTIONS (3)
  - DRUG INEFFECTIVE [None]
  - MUSCLE SPASMS [None]
  - MYALGIA [None]
